FAERS Safety Report 7478496-0 (Version None)
Quarter: 2011Q2

REPORT INFORMATION
  Report Type: 
  Country: None (occurrence: None)
  Receive Date: 20110506
  Receipt Date: 20110421
  Transmission Date: 20111010
  Serious: Yes (Hospitalization, Other)
  Sender: FDA-Public Use
  Company Number: JPI-P-013988

PATIENT
  Age: 43 Year
  Sex: Female
  Weight: 86.1834 kg

DRUGS (39)
  1. WARFARIN SODIUM [Suspect]
     Indication: THROMBOSIS IN DEVICE
     Dates: start: 20110301, end: 20110401
  2. HYDROXYZINE [Concomitant]
  3. SYNTHROID [Concomitant]
  4. VITAMIN D [Concomitant]
  5. CALCIUM [Concomitant]
  6. SIMVASTATIN [Concomitant]
  7. AMPHETAMINE SALT [Concomitant]
  8. UNSPECIFIED ANTIBIOTICS [Suspect]
     Indication: ABSCESS
  9. DESVENLAFAXINE [Concomitant]
  10. CLONAZEPAM [Concomitant]
  11. ONDANSETRON [Concomitant]
  12. ASPIRIN [Concomitant]
  13. FLUOXETINE [Concomitant]
  14. GLUCOSAMINE AND CHONDROITIN [Concomitant]
  15. LORATADINE [Concomitant]
  16. AMPHETAMINE, DEXTROAMPHETAMINE MIXED SALTS [Concomitant]
  17. LORAZEPAM [Concomitant]
  18. LUBIPROSTONE [Concomitant]
  19. ENOXAPARIN SODIUM [Suspect]
     Indication: THROMBOSIS IN DEVICE
     Dates: start: 20110301, end: 20110401
  20. HYOSCYAMINE [Concomitant]
  21. ZONISAMIDE [Concomitant]
  22. ROPINIROLE HYDROCHLORIDE [Concomitant]
  23. CALCIUM AND VITAMIN D [Concomitant]
  24. LOVAZA [Concomitant]
  25. OXYCODONE AND ACETAMINOPHEN [Concomitant]
  26. XYREM [Suspect]
     Indication: CATAPLEXY
     Dosage: SEE IMAGE
     Route: 048
     Dates: start: 20100901, end: 20100101
  27. XYREM [Suspect]
     Indication: ABNORMAL SLEEP-RELATED EVENT
     Dosage: SEE IMAGE
     Route: 048
     Dates: start: 20100901, end: 20100101
  28. XYREM [Suspect]
     Indication: SOMNAMBULISM
     Dosage: SEE IMAGE
     Route: 048
     Dates: start: 20100901, end: 20100101
  29. XYREM [Suspect]
     Indication: CATAPLEXY
     Dosage: SEE IMAGE
     Route: 048
     Dates: start: 20100101, end: 20101205
  30. XYREM [Suspect]
     Indication: ABNORMAL SLEEP-RELATED EVENT
     Dosage: SEE IMAGE
     Route: 048
     Dates: start: 20100101, end: 20101205
  31. XYREM [Suspect]
     Indication: SOMNAMBULISM
     Dosage: SEE IMAGE
     Route: 048
     Dates: start: 20100101, end: 20101205
  32. XYREM [Suspect]
     Indication: CATAPLEXY
     Dosage: SEE IMAGE
     Route: 048
     Dates: start: 20101206
  33. XYREM [Suspect]
     Indication: ABNORMAL SLEEP-RELATED EVENT
     Dosage: SEE IMAGE
     Route: 048
     Dates: start: 20101206
  34. XYREM [Suspect]
     Indication: SOMNAMBULISM
     Dosage: SEE IMAGE
     Route: 048
     Dates: start: 20101206
  35. XYREM [Suspect]
     Indication: CATAPLEXY
     Dosage: SEE IMAGE
     Route: 048
     Dates: start: 20100913, end: 20100901
  36. XYREM [Suspect]
     Indication: ABNORMAL SLEEP-RELATED EVENT
     Dosage: SEE IMAGE
     Route: 048
     Dates: start: 20100913, end: 20100901
  37. XYREM [Suspect]
     Indication: SOMNAMBULISM
     Dosage: SEE IMAGE
     Route: 048
     Dates: start: 20100913, end: 20100901
  38. TRAZODONE HCL [Concomitant]
  39. DULOXETINE HYDROCHLORIDE [Concomitant]

REACTIONS (12)
  - SUBCUTANEOUS ABSCESS [None]
  - STAPHYLOCOCCAL INFECTION [None]
  - BLOOD IMMUNOGLOBULIN G DECREASED [None]
  - VULVOVAGINAL MYCOTIC INFECTION [None]
  - SWELLING [None]
  - DEHYDRATION [None]
  - OTITIS EXTERNA [None]
  - HAEMORRHAGE [None]
  - CLOSTRIDIAL INFECTION [None]
  - THROMBOSIS IN DEVICE [None]
  - ERYTHEMA [None]
  - EAR INFECTION FUNGAL [None]
